FAERS Safety Report 8294330-3 (Version None)
Quarter: 2012Q2

REPORT INFORMATION
  Report Type: 
  Country: None (occurrence: None)
  Receive Date: 20120418
  Receipt Date: 20120411
  Transmission Date: 20120825
  Serious: Yes (Hospitalization)
  Sender: FDA-Public Use
  Company Number: US-B.I. PHARMACEUTICALS,INC./RIDGEFIELD-2012-BP-06821BP

PATIENT
  Sex: Female

DRUGS (4)
  1. COZAAR [Concomitant]
     Dosage: 25 MG
     Route: 048
  2. LEVOXYL [Concomitant]
     Indication: HYPOTHYROIDISM
     Route: 048
  3. PROPRANOLOL [Concomitant]
     Indication: HYPERTENSION
     Dosage: 25 MG
     Route: 048
  4. PRADAXA [Suspect]
     Indication: ATRIAL FIBRILLATION
     Dosage: 300 MG
     Route: 048
     Dates: start: 20111001

REACTIONS (3)
  - OEDEMA PERIPHERAL [None]
  - ECZEMA NUMMULAR [None]
  - NEOPLASM SKIN [None]
